FAERS Safety Report 5805920-9 (Version None)
Quarter: 2008Q3

REPORT INFORMATION
  Report Type: 
  Country: None (occurrence: None)
  Receive Date: 20080710
  Receipt Date: 20080707
  Transmission Date: 20090109
  Serious: Yes (Other)
  Sender: FDA-Public Use
  Company Number: US-ASTRAZENECA-2007UW27343

PATIENT
  Age: 37 Year
  Sex: Male
  Weight: 167.7 kg

DRUGS (18)
  1. SEROQUEL [Suspect]
     Indication: TINNITUS
     Dosage: 100MG, 200MG, 300MG, 900MG
     Route: 048
     Dates: start: 20000101
  2. SEROQUEL [Suspect]
     Indication: SCHIZOPHRENIA
     Dosage: 100MG, 200MG, 300MG, 900MG
     Route: 048
     Dates: start: 20000101
  3. SEROQUEL [Suspect]
     Indication: PARANOIA
     Dosage: 100MG, 200MG, 300MG, 900MG
     Route: 048
     Dates: start: 20000101
  4. ABILIFY [Concomitant]
     Dates: start: 20040101
  5. GEODON [Concomitant]
     Dates: start: 20020101
  6. HALDOL [Concomitant]
     Dates: start: 20070101
  7. RISPERDAL [Concomitant]
     Dates: start: 20020101
  8. THORAZINE [Concomitant]
  9. PROZAC [Concomitant]
  10. VALPROIC ACID [Concomitant]
     Dates: start: 20070101
  11. CITALOPRAM HYDROBROMIDE [Concomitant]
     Dates: start: 20070101
  12. CLONAZEPAM [Concomitant]
     Dates: start: 20070101
  13. HBM [Concomitant]
  14. WELLBUTRIN SR [Concomitant]
     Dates: start: 20020101
  15. LEXAPRO [Concomitant]
     Dates: start: 20020101
  16. TRAZODONE HCL [Concomitant]
     Dates: start: 20000101
  17. DEPAKOTE [Concomitant]
     Dates: start: 20060101
  18. PAXIL [Concomitant]
     Dates: start: 20000101

REACTIONS (8)
  - BACK PAIN [None]
  - BLOOD TRIGLYCERIDES INCREASED [None]
  - BORDERLINE PERSONALITY DISORDER [None]
  - CARPAL TUNNEL SYNDROME [None]
  - DIABETES MELLITUS [None]
  - GALLBLADDER OPERATION [None]
  - OBESITY [None]
  - SLEEP APNOEA SYNDROME [None]
